FAERS Safety Report 6331905-2 (Version None)
Quarter: 2009Q3

REPORT INFORMATION
  Report Type: 
  Country: None (occurrence: None)
  Receive Date: 20090826
  Receipt Date: 20090812
  Transmission Date: 20100115
  Serious: Yes (Other)
  Sender: FDA-Public Use
  Company Number: 8050378

PATIENT
  Sex: Male

DRUGS (2)
  1. KEPPRA [Suspect]
     Indication: CONVULSION
     Dates: start: 20090101
  2. DECADRON [Concomitant]

REACTIONS (1)
  - THROMBOCYTOPENIA [None]
